FAERS Safety Report 8255325-9 (Version None)
Quarter: 2012Q2

REPORT INFORMATION
  Report Type: 
  Country: None (occurrence: None)
  Receive Date: 20120403
  Receipt Date: 20120323
  Transmission Date: 20120825
  Serious: Yes (Other)
  Sender: FDA-Public Use
  Company Number: FR-BRISTOL-MYERS SQUIBB COMPANY-16497349

PATIENT
  Age: 30 Year
  Sex: Female

DRUGS (15)
  1. COLISTIMETHATE SODIUM [Suspect]
     Dosage: 1 DF= 1 MIU. FORM: POWDER AND SOLVENT FOR NEBULIZER SOLUTION
  2. AMLODIPINE BESYLATE [Suspect]
     Indication: HYPERTENSION
     Dosage: CAPSULE
     Route: 048
  3. INSULATARD NPH HUMAN [Suspect]
     Indication: DIABETES MELLITUS
     Dosage: 8IU MORNING + 4IU EVENING
     Route: 058
  4. PRAVASTATIN [Suspect]
     Indication: DYSLIPIDAEMIA
     Dosage: FORM: SCORED TABS
     Route: 048
  5. MUCOMYST [Suspect]
     Indication: DIABETES MELLITUS
     Dosage: 3 SACHETS 3 TIMES A DAY
     Route: 048
  6. PREDNISONE TAB [Suspect]
     Route: 048
     Dates: end: 20110127
  7. TACROLIMUS [Suspect]
     Dosage: INCREASED TO 12MG/DAY ON 20MAY11
     Route: 048
     Dates: end: 20110127
  8. ERGOCALCIFEROL [Concomitant]
  9. CALCIUM CARBONATE [Concomitant]
     Indication: OSTEOPOROSIS
  10. IMURAN [Suspect]
     Dosage: FILM COATED TABLET
     Route: 048
     Dates: end: 20110127
  11. TRANDATE [Suspect]
     Indication: HYPERTENSION
     Route: 048
  12. CREON [Concomitant]
     Indication: OSTEOPOROSIS
     Dosage: 1 DF= 15 CAPS
  13. URSOLVAN [Concomitant]
     Indication: OSTEOPOROSIS
     Dosage: 1 DF= 2 TABS
  14. ASPIRIN [Suspect]
     Indication: DIABETES MELLITUS
     Dosage: FORM: POWDER FOR ORAL SOLUTION SACHET
     Route: 048
  15. TOCO [Concomitant]
     Indication: OSTEOPOROSIS
     Dosage: FORM: TOCO 500

REACTIONS (3)
  - PREMATURE DELIVERY [None]
  - PREGNANCY [None]
  - PRE-ECLAMPSIA [None]
